FAERS Safety Report 9256023 (Version 1)
Quarter: 2013Q2

REPORT INFORMATION
  Report Type: Report from Study
  Country: DE (occurrence: DE)
  Receive Date: 20130425
  Receipt Date: 20130425
  Transmission Date: 20140414
  Serious: Yes (Hospitalization, Other)
  Sender: FDA-Public Use
  Company Number: DE-ALLERGAN-1305546US

PATIENT
  Age: 52 Year
  Sex: Male
  Weight: 92 kg

DRUGS (10)
  1. BLINDED PLACEBO [Suspect]
     Indication: ICHTHYOSIS
     Dosage: 1 DF, QD
     Route: 061
     Dates: start: 20111214, end: 20120614
  2. BLINDED TAZAROTENE UNK [Suspect]
     Indication: ICHTHYOSIS
     Dosage: 1 DF, QD
     Route: 061
     Dates: start: 20111214, end: 20120614
  3. BLINDED UREA [Suspect]
     Indication: ICHTHYOSIS
     Dosage: 1 DF, QD
     Route: 061
     Dates: start: 20111214, end: 20120614
  4. BLINDED PLACEBO [Suspect]
     Dosage: 1 DF, QD
     Route: 061
     Dates: start: 20120620
  5. BLINDED TAZAROTENE UNK [Suspect]
     Dosage: 1 DF, QD
     Route: 061
     Dates: start: 20120620
  6. BLINDED UREA [Suspect]
     Dosage: 1 DF, QD
     Route: 061
     Dates: start: 20120620
  7. RAMIPRIL [Concomitant]
     Indication: HYPERTENSION
     Dosage: 5 MG, QD
     Dates: start: 2008
  8. ALLOPURINOL [Concomitant]
     Indication: DEHYDRATION
     Dosage: 300 MG, QD
     Dates: start: 2008
  9. UREA [Concomitant]
     Indication: ICHTHYOSIS
     Dosage: 10 %, BID
     Dates: end: 20121205
  10. UNGUENTUM MERCK [Concomitant]
     Indication: ICHTHYOSIS
     Dosage: UNK UNK, BID
     Dates: end: 20121205

REACTIONS (2)
  - Alcohol poisoning [Recovered/Resolved]
  - Diabetes mellitus [Unknown]
